FAERS Safety Report 9585401 (Version 1)
Quarter: 2013Q4

REPORT INFORMATION
  Report Type: Spontaneous
  Country: US (occurrence: US)
  Receive Date: 20131002
  Receipt Date: 20131002
  Transmission Date: 20140711
  Serious: No
  Sender: FDA-Public Use
  Company Number: US-AMGEN-USASP2013064368

PATIENT
  Age: 39 Year
  Sex: Female
  Weight: 78.01 kg

DRUGS (6)
  1. ENBREL [Suspect]
     Indication: PRODUCT USED FOR UNKNOWN INDICATION
     Dosage: 50 MG, QWK
     Route: 058
  2. XANAX [Concomitant]
     Dosage: 1 MG, UNK
  3. ARAVA [Concomitant]
     Dosage: 20 MG, UNK
  4. VITAMIN D                          /00107901/ [Concomitant]
     Dosage: 1000 UNIT, UNK
  5. CALCIUM D                          /00944201/ [Concomitant]
     Dosage: UNK
  6. MULTIVIT                           /07504101/ [Concomitant]
     Dosage: UNK

REACTIONS (2)
  - Injection site warmth [Unknown]
  - Injection site swelling [Unknown]
